FAERS Safety Report 8471682-2 (Version None)
Quarter: 2012Q2

REPORT INFORMATION
  Report Type: 
  Country: None (occurrence: None)
  Receive Date: 20120627
  Receipt Date: 20120620
  Transmission Date: 20120825
  Serious: Yes (Hospitalization)
  Sender: FDA-Public Use
  Company Number: CA-GLAXOSMITHKLINE-A0964892A

PATIENT
  Sex: Female

DRUGS (7)
  1. TYKERB [Suspect]
     Indication: BREAST CANCER
     Dosage: 1250MG PER DAY
     Route: 048
     Dates: start: 20111228
  2. ATENOLOL [Concomitant]
  3. DEXAMETHASONE [Concomitant]
  4. XELODA [Concomitant]
  5. HYDROCHLOROTHIAZIDE [Concomitant]
  6. NORVASC [Concomitant]
  7. FRAGMIN [Concomitant]

REACTIONS (9)
  - CHEST DISCOMFORT [None]
  - NAIL DISCOLOURATION [None]
  - PULMONARY THROMBOSIS [None]
  - HYPOTENSION [None]
  - SKIN DISCOLOURATION [None]
  - ARTHRALGIA [None]
  - DRY SKIN [None]
  - COUGH [None]
  - HAEMOPTYSIS [None]
